FAERS Safety Report 11142729 (Version 2)
Quarter: 2015Q2

REPORT INFORMATION
  Report Type: Spontaneous
  Country: BR (occurrence: BR)
  Receive Date: 20150527
  Receipt Date: 20150529
  Transmission Date: 20150821
  Serious: Yes (Hospitalization, Other)
  Sender: FDA-Public Use
  Company Number: PHHY2015BR063146

PATIENT
  Age: 31 Year
  Sex: Female
  Weight: 55 kg

DRUGS (15)
  1. EVEROLIMUS [Suspect]
     Active Substance: EVEROLIMUS
     Dosage: UNK
     Route: 065
  2. THYMOGLOBULIN [Suspect]
     Active Substance: LAPINE T-LYMPHOCYTE IMMUNE GLOBULIN
     Indication: RENAL TRANSPLANT
     Dosage: 1.5 MG/KG, (4 DOSES)
     Route: 065
  3. TACROLIMUS. [Suspect]
     Active Substance: TACROLIMUS
     Dosage: 4 MG, BID
     Route: 065
  4. METHYLPREDNISOLONE. [Suspect]
     Active Substance: METHYLPREDNISOLONE
     Indication: RENAL TRANSPLANT
     Dosage: 250 MG, UNK
     Route: 065
  5. PREDNISONE. [Suspect]
     Active Substance: PREDNISONE
     Indication: RENAL TRANSPLANT
     Dosage: 20 MG, QD
     Route: 065
  6. VALCYTE [Suspect]
     Active Substance: VALGANCICLOVIR HYDROCHLORIDE
     Indication: ANTIVIRAL PROPHYLAXIS
     Dosage: 450 MG, QD
     Route: 065
     Dates: end: 20120809
  7. MYCOPHENOLATE [Suspect]
     Active Substance: MYCOPHENOLIC ACID
     Dosage: 360 MG, BID
     Route: 065
     Dates: start: 20120515
  8. METHYLPREDNISOLONE. [Suspect]
     Active Substance: METHYLPREDNISOLONE
     Dosage: 125 MG, UNK
     Route: 065
  9. EVEROLIMUS [Suspect]
     Active Substance: EVEROLIMUS
     Indication: RENAL TRANSPLANT
     Dosage: UNK
     Route: 065
  10. MYCOPHENOLATE [Suspect]
     Active Substance: MYCOPHENOLIC ACID
     Dosage: 180 MG, BID
     Route: 065
     Dates: start: 20120601
  11. TACROLIMUS. [Suspect]
     Active Substance: TACROLIMUS
     Dosage: REDUCED A 50%
     Route: 065
  12. TACROLIMUS. [Suspect]
     Active Substance: TACROLIMUS
     Indication: RENAL TRANSPLANT
     Dosage: 5 MG, BID
     Route: 065
  13. MYCOPHENOLATE [Suspect]
     Active Substance: MYCOPHENOLIC ACID
     Indication: RENAL TRANSPLANT
     Dosage: 360 MG, TID
     Route: 065
  14. PREDNISONE. [Suspect]
     Active Substance: PREDNISONE
     Dosage: 10 MG, QD
     Route: 065
  15. METHYLPREDNISOLONE. [Suspect]
     Active Substance: METHYLPREDNISOLONE
     Dosage: 125 MG, UNK
     Route: 065

REACTIONS (13)
  - Deep vein thrombosis [Unknown]
  - White blood cell count increased [Unknown]
  - Blood creatinine increased [Unknown]
  - Polyomavirus-associated nephropathy [Unknown]
  - Peritonitis [Unknown]
  - Cytomegalovirus test positive [Recovered/Resolved]
  - Osteomyelitis [Unknown]
  - Tibia fracture [Unknown]
  - Immunosuppressant drug level increased [Unknown]
  - Dehydration [Unknown]
  - Pelvic venous thrombosis [Unknown]
  - Diarrhoea [Unknown]
  - White blood cell count decreased [Unknown]

NARRATIVE: CASE EVENT DATE: 20120515
